FAERS Safety Report 5071691-X (Version None)
Quarter: 2006Q3

REPORT INFORMATION
  Report Type: 
  Country: None (occurrence: None)
  Receive Date: 20060804
  Receipt Date: 20060425
  Transmission Date: 20061208
  Serious: Yes (Congenital Anomaly, Other)
  Sender: FDA-Public Use
  Company Number: PHEH2006US05460

PATIENT
  Age: 76 Year
  Sex: Male

DRUGS (8)
  1. ZOMETA [Suspect]
     Indication: METASTASES TO BONE
     Dosage: 4 MG ONCE A MONTH
     Dates: start: 20031209, end: 20060425
  2. TAXOTERE [Concomitant]
     Indication: NON-SMALL CELL LUNG CANCER
     Dosage: 135 (UNSPECIFIED)
     Dates: start: 20051001, end: 20060101
  3. NAVELBINE [Concomitant]
     Indication: NON-SMALL CELL LUNG CANCER
     Dosage: 48 (UNSPECIFIED) WEEKLY
     Dates: start: 20050101, end: 20050601
  4. ALIMTA [Concomitant]
     Indication: NON-SMALL CELL LUNG CANCER
     Dosage: 900 MG EVERY 21 DAYS
     Dates: start: 20050801, end: 20050901
  5. DECADRON [Concomitant]
     Indication: PROPHYLAXIS
  6. TAXOL + CARBOPLATIN [Concomitant]
     Indication: NON-SMALL CELL LUNG CANCER
     Dosage: 85/190 EVERY 21 DAYS
     Dates: start: 20030801, end: 20031001
  7. GEMZAR [Concomitant]
     Indication: NON-SMALL CELL LUNG CANCER
     Dosage: WITH CARBO 800 (UNSPECIFIED) EVERY 14 DAYS
     Dates: start: 20031001, end: 20040301
  8. GEMZAR [Concomitant]
     Dosage: 400 (UNSPECIFIED) EVERY 14 DAYS
     Dates: start: 20060201

REACTIONS (10)
  - ANAEMIA [None]
  - BONE DISORDER [None]
  - GINGIVAL INFECTION [None]
  - JAW DISORDER [None]
  - ORAL SOFT TISSUE DISORDER [None]
  - OSTEONECROSIS [None]
  - PAIN [None]
  - SOFT TISSUE INFECTION [None]
  - SWELLING [None]
  - TOOTH EXTRACTION [None]
